FAERS Safety Report 6498902-8 (Version None)
Quarter: 2009Q4

REPORT INFORMATION
  Report Type: 
  Country: None (occurrence: None)
  Receive Date: 20091215
  Receipt Date: 20091203
  Transmission Date: 20100525
  Serious: Yes (Other)
  Sender: FDA-Public Use
  Company Number: JP-PFIZER INC-2009270804

PATIENT
  Age: 82 Year
  Sex: Male

DRUGS (2)
  1. CLINDAMYCIN PHOSPHATE [Suspect]
     Indication: ENDOCARDITIS
  2. AMPICILLIN AND AMPICILLIN SODIUM AND AMPICILLIN TRIHYDRATE [Suspect]
     Indication: ENDOCARDITIS

REACTIONS (1)
  - PNEUMONIA [None]
